FAERS Safety Report 7248285-0 (Version None)
Quarter: 2011Q1

REPORT INFORMATION
  Report Type: 
  Country: None (occurrence: None)
  Receive Date: 20110127
  Receipt Date: 20110114
  Transmission Date: 20110831
  Serious: Yes (Other)
  Sender: FDA-Public Use
  Company Number: US-BAYER-2011-005411

PATIENT
  Sex: Female
  Weight: 60 kg

DRUGS (2)
  1. BAYER EXTRA STRENGTH PM [Suspect]
     Dosage: 0.5 DF, ONCE
     Dates: start: 20110113
  2. BAYER EXTRA STRENGTH PM [Suspect]
     Indication: SLEEP DISORDER THERAPY
     Dosage: BOTTLE COUNT 40S
     Dates: start: 20010101, end: 20110112

REACTIONS (2)
  - PARAESTHESIA [None]
  - INSOMNIA [None]
